FAERS Safety Report 10503197 (Version 3)
Quarter: 2014Q4

REPORT INFORMATION
  Report Type: Spontaneous
  Country: JP (occurrence: JP)
  Receive Date: 20141007
  Receipt Date: 20141021
  Transmission Date: 20150528
  Serious: Yes (Other)
  Sender: FDA-Public Use
  Company Number: JP-ROCHE-1470001

PATIENT
  Age: 74 Year
  Sex: Male

DRUGS (2)
  1. LUCENTIS [Suspect]
     Active Substance: RANIBIZUMAB
     Indication: POLYPOIDAL CHOROIDAL VASCULOPATHY
     Dosage: IN LEFT EYE
     Route: 050
     Dates: start: 20110111
  2. LUCENTIS [Suspect]
     Active Substance: RANIBIZUMAB
     Indication: AGE-RELATED MACULAR DEGENERATION
     Dosage: IN LEFT EYE
     Route: 050
     Dates: start: 201103, end: 201103

REACTIONS (2)
  - Visual acuity reduced [Unknown]
  - Detachment of retinal pigment epithelium [Unknown]

NARRATIVE: CASE EVENT DATE: 20130117
